FAERS Safety Report 5000038-X (Version None)
Quarter: 2006Q2

REPORT INFORMATION
  Report Type: 
  Country: None (occurrence: None)
  Receive Date: 20060501
  Receipt Date: 20060403
  Transmission Date: 20061013
  Serious: Yes (Life-Threatening)
  Sender: FDA-Public Use
  Company Number: 2006053881

PATIENT
  Age: 77 Year
  Sex: Male

DRUGS (2)
  1. IRINOTECAN HYDROCHLORIDE SOLUTION, STERILE  (IRINOTECAN HYDROCHLORIDE) [Suspect]
     Indication: COLORECTAL CANCER
     Dosage: 100 MG (100 MG, DAILY), INTRAVENOUS
     Route: 042
     Dates: start: 20060330, end: 20060330
  2. TEGAFUR/GIMERACIL/OTERACIL POTASSIUM (TEGAFUR/GIMERACIL/OTERACIL POTAS [Concomitant]

REACTIONS (1)
  - INTERSTITIAL LUNG DISEASE [None]
